FAERS Safety Report 4717991-1 (Version None)
Quarter: 2005Q3

REPORT INFORMATION
  Report Type: 
  Country: None (occurrence: None)
  Receive Date: 20050718
  Receipt Date: 20050224
  Transmission Date: 20060218
  Serious: No
  Sender: FDA-Public Use
  Company Number: 2005000445

PATIENT
  Age: 74 Year
  Sex: Female

DRUGS (2)
  1. TARCEVA [Suspect]
     Indication: NON-SMALL CELL LUNG CANCER
     Dosage: 150 MG (QD), ORAL;  150 MG (QOD), ORAL
     Route: 048
     Dates: start: 20050126, end: 20050214
  2. TARCEVA [Suspect]
     Indication: NON-SMALL CELL LUNG CANCER
     Dosage: 150 MG (QD), ORAL;  150 MG (QOD), ORAL
     Route: 048
     Dates: start: 20050214, end: 20050218

REACTIONS (2)
  - DRY MOUTH [None]
  - RASH [None]
